FAERS Safety Report 25087461 (Version 2)
Quarter: 2025Q1

REPORT INFORMATION
  Report Type: Spontaneous
  Country: US (occurrence: US)
  Receive Date: 20250318
  Receipt Date: 20250321
  Transmission Date: 20250408
  Serious: Yes (Hospitalization, Other)
  Sender: RANBAXY
  Company Number: US-SUN PHARMACEUTICAL INDUSTRIES LTD-2025R1-499185

PATIENT
  Age: 48 Year
  Sex: Female

DRUGS (1)
  1. METHIMAZOLE [Suspect]
     Active Substance: METHIMAZOLE
     Indication: Product used for unknown indication
     Route: 065

REACTIONS (8)
  - Liver function test increased [Unknown]
  - Autoimmune hepatitis [Unknown]
  - Drug-induced liver injury [Unknown]
  - Necrosis [Unknown]
  - Ascites [Unknown]
  - Oedema [Unknown]
  - Leukocytosis [Unknown]
  - Cytomegalovirus viraemia [Unknown]
